FAERS Safety Report 4635576-2 (Version None)
Quarter: 2005Q2

REPORT INFORMATION
  Report Type: 
  Country: None (occurrence: None)
  Receive Date: 20050414
  Receipt Date: 20050329
  Transmission Date: 20051028
  Serious: Yes (Hospitalization)
  Sender: FDA-Public Use
  Company Number: 003#3#2005-00104

PATIENT
  Age: 67 Year
  Sex: Female

DRUGS (4)
  1. ELANTAN-DOSE-UNKNOWN (ISOSORBIDE MONONITRATE) [Suspect]
     Indication: CARDIOVASCULAR DISORDER
  2. BISOPROLOL (BISOPROLOL) [Suspect]
     Indication: CARDIOVASCULAR DISORDER
  3. BUMETANIDE [Suspect]
     Indication: CARDIOVASCULAR DISORDER
  4. ENALAPRIL MALEATE [Suspect]
     Indication: CARDIOVASCULAR DISORDER

REACTIONS (8)
  - BLOOD PRESSURE IMMEASURABLE [None]
  - BRADYCARDIA [None]
  - DIALYSIS [None]
  - DIARRHOEA [None]
  - ELECTROCARDIOGRAM ABNORMAL [None]
  - ELECTROCARDIOGRAM QRS COMPLEX PROLONGED [None]
  - HYPERKALAEMIA [None]
  - RENAL FAILURE ACUTE [None]
